FAERS Safety Report 20003989 (Version 3)
Quarter: 2022Q1

REPORT INFORMATION
  Report Type: Spontaneous
  Country: US (occurrence: US)
  Receive Date: 20211027
  Receipt Date: 20220112
  Transmission Date: 20220423
  Serious: Yes (Hospitalization, Other)
  Sender: FDA-Public Use
  Company Number: US-PFIZER INC-202101450165

PATIENT
  Sex: Female

DRUGS (2)
  1. CHANTIX [Suspect]
     Active Substance: VARENICLINE TARTRATE
     Indication: Smoking cessation therapy
     Dosage: 0.5 MG
     Dates: start: 20200212
  2. CHANTIX [Suspect]
     Active Substance: VARENICLINE TARTRATE
     Dosage: 0.5 MG
     Dates: start: 20200323

REACTIONS (13)
  - Insomnia [Unknown]
  - Affective disorder [Unknown]
  - Anxiety [Unknown]
  - Bipolar disorder [Unknown]
  - Substance-induced psychotic disorder [Unknown]
  - Judgement impaired [Unknown]
  - Irritability [Unknown]
  - Depression [Unknown]
  - Paranoia [Unknown]
  - Delusion [Unknown]
  - Loss of consciousness [Unknown]
  - Urinary incontinence [Unknown]
  - Amnesia [Unknown]

NARRATIVE: CASE EVENT DATE: 20200401
